FAERS Safety Report 20697472 (Version 1)
Quarter: 2022Q2

REPORT INFORMATION
  Report Type: Spontaneous
  Country: US (occurrence: US)
  Receive Date: 20220411
  Receipt Date: 20220411
  Transmission Date: 20220721
  Serious: No
  Sender: FDA-Public Use
  Company Number: US-BIOMARINAP-US-2022-142544

PATIENT
  Age: 31 Year
  Sex: Female
  Weight: 54.422 kg

DRUGS (5)
  1. KUVAN [Suspect]
     Active Substance: SAPROPTERIN DIHYDROCHLORIDE
     Indication: Phenylketonuria
     Dosage: 1200 MILLIGRAM, QD
     Route: 048
     Dates: start: 2017
  2. TYROSINE [Concomitant]
     Active Substance: TYROSINE
     Indication: Product used for unknown indication
  3. VITAMIN B12 [Concomitant]
     Active Substance: CYANOCOBALAMIN
     Indication: Product used for unknown indication
     Dosage: 2500 MICROGRAM
  4. CALCIUM [Concomitant]
     Active Substance: CALCIUM
     Indication: Product used for unknown indication
     Dosage: 250 MILLIGRAM
  5. PRENATAL U [Concomitant]
     Indication: Product used for unknown indication

REACTIONS (1)
  - Maternal exposure during pregnancy [Unknown]

NARRATIVE: CASE EVENT DATE: 20210527
